FAERS Safety Report 5480556-0 (Version None)
Quarter: 2007Q4

REPORT INFORMATION
  Report Type: 
  Country: None (occurrence: None)
  Receive Date: 20071009
  Receipt Date: 20071004
  Transmission Date: 20080405
  Serious: Yes (Life-Threatening, Hospitalization, Other)
  Sender: FDA-Public Use
  Company Number: A0686148A

PATIENT
  Age: 41 Year
  Sex: Male

DRUGS (4)
  1. LAMICTAL [Suspect]
     Indication: BIPOLAR DISORDER
     Dosage: 25MG PER DAY
     Route: 048
     Dates: start: 20070906
  2. CAMPRAL [Concomitant]
  3. LEXAPRO [Concomitant]
  4. LYRICA [Concomitant]

REACTIONS (3)
  - PNEUMONIA [None]
  - PYREXIA [None]
  - RASH [None]
